FAERS Safety Report 23333061 (Version 1)
Quarter: 2023Q4

REPORT INFORMATION
  Report Type: Spontaneous
  Country: FR (occurrence: FR)
  Receive Date: 20231222
  Receipt Date: 20231222
  Transmission Date: 20240110
  Serious: Yes (Other)
  Sender: FDA-Public Use
  Company Number: FR-SUN PHARMACEUTICAL INDUSTRIES LTD-2023RR-424924

PATIENT
  Age: 33 Year
  Sex: Female

DRUGS (2)
  1. AMOXICILLIN [Suspect]
     Active Substance: AMOXICILLIN
     Indication: Sinusitis
     Dosage: UNK
     Route: 048
     Dates: start: 202112, end: 202112
  2. IBUPROFEN [Suspect]
     Active Substance: IBUPROFEN
     Indication: Sinusitis
     Dosage: 400 MILLIGRAM
     Route: 048
     Dates: start: 202112, end: 202112

REACTIONS (1)
  - Angioedema [Recovered/Resolved]

NARRATIVE: CASE EVENT DATE: 20211201
